FAERS Safety Report 4756393-9 (Version None)
Quarter: 2005Q3

REPORT INFORMATION
  Report Type: 
  Country: None (occurrence: None)
  Receive Date: 20050830
  Receipt Date: 20050614
  Transmission Date: 20060218
  Serious: No
  Sender: FDA-Public Use
  Company Number: US-GLAXOSMITHKLINE-A0562613A

PATIENT
  Age: 65 Year
  Sex: Female

DRUGS (4)
  1. WELLBUTRIN [Suspect]
     Indication: DEPRESSION
     Dosage: 150MG PER DAY
     Route: 048
  2. PREMARIN [Concomitant]
  3. KLONOPIN [Concomitant]
  4. HYZAAR [Concomitant]

REACTIONS (1)
  - TREMOR [None]
